FAERS Safety Report 8816735 (Version 1)
Quarter: 2012Q4

REPORT INFORMATION
  Report Type: Spontaneous
  Country: US (occurrence: None)
  Receive Date: 20121001
  Receipt Date: 20121001
  Transmission Date: 20130627
  Serious: Yes (Other)
  Sender: FDA-Public Use
  Company Number: JPI-P-025140

PATIENT
  Age: 30 Year
  Sex: Female
  Weight: 52.16 kg

DRUGS (9)
  1. XYREM [Suspect]
     Indication: NARCOLEPSY
     Route: 048
     Dates: start: 20110627
  2. XYREM [Suspect]
     Indication: NARCOLEPSY
     Route: 048
  3. XYREM [Suspect]
     Indication: NARCOLEPSY
     Dosage: gm, 4.5 gm first dose/2.25 gm second dose, oral
     Route: 048
  4. XYREM [Suspect]
     Indication: NARCOLEPSY
  5. ALBUTEROL [Concomitant]
  6. CETIRIZINE [Concomitant]
  7. METHYLPHENIDATE [Concomitant]
  8. ORAL CONTRACEPTIVE PILL [Concomitant]
  9. MULTIVITAMIN [Concomitant]

REACTIONS (2)
  - Weight decreased [None]
  - Femoral hernia [None]
